FAERS Safety Report 8607053-5 (Version None)
Quarter: 2012Q3

REPORT INFORMATION
  Report Type: 
  Country: None (occurrence: None)
  Receive Date: 20120821
  Receipt Date: 20120814
  Transmission Date: 20120928
  Serious: Yes (Hospitalization, Other)
  Sender: FDA-Public Use
  Company Number: CA-AMGEN-CANSP2012051372

PATIENT
  Age: 89 Year
  Sex: Male

DRUGS (1)
  1. ARANESP [Suspect]
     Indication: NEPHROGENIC ANAEMIA
     Dosage: 300 MUG/ML, Q3WK
     Route: 058
     Dates: start: 20110201

REACTIONS (5)
  - FRACTURE [None]
  - MULTIPLE MYELOMA [None]
  - DRUG INEFFECTIVE [None]
  - APLASIA PURE RED CELL [None]
  - ANAEMIA [None]
